FAERS Safety Report 14852619 (Version 3)
Quarter: 2018Q3

REPORT INFORMATION
  Report Type: Spontaneous
  Country: HR (occurrence: HR)
  Receive Date: 20180507
  Receipt Date: 20180814
  Transmission Date: 20181010
  Serious: Yes (Other)
  Sender: FDA-Public Use
  Company Number: HR-TOLMAR, INC.-2018HR004657

PATIENT

DRUGS (2)
  1. ELIGARD [Suspect]
     Active Substance: LEUPROLIDE ACETATE
     Indication: PROSTATE CANCER METASTATIC
     Dosage: 22.5 MG, UNK
     Route: 065
  2. BICALUTAMIDE. [Suspect]
     Active Substance: BICALUTAMIDE
     Indication: PROSTATE CANCER METASTATIC
     Dosage: UNK, UNK
     Route: 065

REACTIONS (5)
  - Tremor [Unknown]
  - Condition aggravated [Unknown]
  - Nervous system disorder [Unknown]
  - Muscular weakness [Unknown]
  - Drug interaction [Unknown]

NARRATIVE: CASE EVENT DATE: 201605
